FAERS Safety Report 5834017-7 (Version None)
Quarter: 2008Q3

REPORT INFORMATION
  Report Type: 
  Country: None (occurrence: None)
  Receive Date: 20080731
  Receipt Date: 20080716
  Transmission Date: 20090109
  Serious: Yes (Hospitalization)
  Sender: FDA-Public Use
  Company Number: 15060

PATIENT
  Age: 52 Year
  Sex: Female
  Weight: 103.4201 kg

DRUGS (5)
  1. MORPHINE SULFATE [Suspect]
     Indication: RHEUMATOID ARTHRITIS
     Dosage: 60 MG BID ORALLY
     Route: 048
     Dates: start: 20080401, end: 20080512
  2. LOPRESSOR [Concomitant]
  3. SYNTHROID [Concomitant]
  4. LACTULOSE [Concomitant]
  5. NEXIUM [Concomitant]

REACTIONS (3)
  - ACCIDENTAL OVERDOSE [None]
  - LOSS OF CONSCIOUSNESS [None]
  - PHARMACEUTICAL PRODUCT COMPLAINT [None]
